FAERS Safety Report 5236559-4 (Version None)
Quarter: 2007Q1

REPORT INFORMATION
  Report Type: 
  Country: None (occurrence: None)
  Receive Date: 20070208
  Receipt Date: 20070129
  Transmission Date: 20070707
  Serious: Yes (Hospitalization)
  Sender: FDA-Public Use
  Company Number: 2006BI018180

PATIENT
  Sex: Male

DRUGS (2)
  1. AVONEX [Suspect]
     Indication: MULTIPLE SCLEROSIS
     Dosage: 30 UG; QW; IM
     Route: 030
     Dates: start: 19980308
  2. BETASERON [Concomitant]

REACTIONS (3)
  - DECUBITUS ULCER [None]
  - MULTIPLE SCLEROSIS [None]
  - URINARY TRACT INFECTION [None]
